FAERS Safety Report 14198613 (Version 1)
Quarter: 2017Q4

REPORT INFORMATION
  Report Type: Report from Study
  Country: None (occurrence: CA)
  Receive Date: 20171117
  Receipt Date: 20171117
  Transmission Date: 20180321
  Serious: Yes (Hospitalization, Other)
  Sender: FDA-Public Use
  Company Number: CA-ABBVIE-17K-028-1995558-00

PATIENT
  Age: 63 Year
  Sex: Male

DRUGS (1)
  1. HUMIRA [Suspect]
     Active Substance: ADALIMUMAB
     Indication: CROHN^S DISEASE
     Route: 058
     Dates: start: 20160824, end: 20170526

REACTIONS (8)
  - Infection susceptibility increased [Unknown]
  - Benign neoplasm of prostate [Unknown]
  - Blood pressure decreased [Unknown]
  - Urinary tract infection [Not Recovered/Not Resolved]
  - Renal function test abnormal [Unknown]
  - Residual urine volume increased [Unknown]
  - Vomiting [Unknown]
  - Cystitis [Recovering/Resolving]

NARRATIVE: CASE EVENT DATE: 2017
